FAERS Safety Report 4796226-8 (Version None)
Quarter: 2005Q4

REPORT INFORMATION
  Report Type: 
  Country: None (occurrence: None)
  Receive Date: 20051013
  Receipt Date: 20051004
  Transmission Date: 20060501
  Serious: Yes (Hospitalization)
  Sender: FDA-Public Use
  Company Number: FR-BOEHRINGER INGELHEIM PHARMACEUTICALS, INC.-2005-BP-18122YA

PATIENT
  Age: 82 Year
  Sex: Male

DRUGS (10)
  1. TAMSULOSIN HCL [Suspect]
     Indication: BENIGN PROSTATIC HYPERPLASIA
     Route: 048
     Dates: start: 20050311
  2. PROSCAR [Suspect]
     Indication: BENIGN PROSTATIC HYPERPLASIA
     Route: 048
     Dates: start: 20050311
  3. GABAPENTIN [Concomitant]
  4. RAMIPRIL [Concomitant]
  5. SERTRALINE HCL [Concomitant]
  6. ISOPHANE INSULIN [Concomitant]
     Route: 058
  7. BUDESONIDE [Concomitant]
     Route: 055
  8. CLOPIDOGREL BISULFATE [Concomitant]
  9. FUROSEMIDE [Concomitant]
  10. PANTOPRAZOLE [Concomitant]

REACTIONS (1)
  - GYNAECOMASTIA [None]
